FAERS Safety Report 8606127-2 (Version None)
Quarter: 2012Q3

REPORT INFORMATION
  Report Type: 
  Country: None (occurrence: None)
  Receive Date: 20120820
  Receipt Date: 19960225
  Transmission Date: 20120928
  Serious: Yes (Hospitalization)
  Sender: FDA-Public Use
  Company Number: US-ROCHE-1101480

PATIENT
  Age: 48 Year
  Sex: Female

DRUGS (8)
  1. ASPIRIN [Concomitant]
  2. LIDOCAINE [Concomitant]
  3. HEPARIN [Concomitant]
  4. ACTIVASE [Suspect]
     Indication: ACUTE MYOCARDIAL INFARCTION
  5. MORPHINE [Concomitant]
  6. NITROGLYCERIN [Concomitant]
     Route: 035
  7. PRILOSEC [Concomitant]
  8. LOPRESSOR [Concomitant]

REACTIONS (5)
  - PYREXIA [None]
  - HIATUS HERNIA [None]
  - ABDOMINAL PAIN UPPER [None]
  - DYSPEPSIA [None]
  - VENTRICULAR TACHYCARDIA [None]
